FAERS Safety Report 6711820-2 (Version None)
Quarter: 2010Q2

REPORT INFORMATION
  Report Type: 
  Country: None (occurrence: None)
  Receive Date: 20100505
  Receipt Date: 20100408
  Transmission Date: 20101027
  Serious: Yes (Death)
  Sender: FDA-Public Use
  Company Number: AU-B.I. PHARMACEUTICALS,INC./RIDGEFIELD-2010-AU-00363AU

PATIENT
  Age: 84 Year
  Sex: Female

DRUGS (1)
  1. MICARDIS [Suspect]

REACTIONS (1)
  - CEREBROVASCULAR ACCIDENT [None]
